FAERS Safety Report 9919190 (Version 2)
Quarter: 2014Q1

REPORT INFORMATION
  Report Type: Spontaneous
  Country: US (occurrence: US)
  Receive Date: 20140224
  Receipt Date: 20140317
  Transmission Date: 20141002
  Serious: Yes (Hospitalization, Other)
  Sender: FDA-Public Use
  Company Number: US-PFIZER INC-2014048223

PATIENT
  Age: 65 Year
  Sex: Male
  Weight: 63.49 kg

DRUGS (23)
  1. REVATIO [Suspect]
     Indication: PULMONARY HYPERTENSION
     Dosage: 20 MG, 3X/DAY
     Route: 048
  2. LETAIRIS [Concomitant]
     Indication: PULMONARY HYPERTENSION
     Dosage: UNK
  3. PARICALCITOL [Concomitant]
     Dosage: UNK
  4. BUMETANIDE [Concomitant]
     Dosage: UNK
  5. CARVEDILOL [Concomitant]
     Dosage: UNK
  6. CITALOPRAM [Concomitant]
     Dosage: UNK
  7. WARFARIN [Concomitant]
     Dosage: 4MG AND 5MG EVERY ALTENATIVE DAY
  8. OMEPRAZOLE [Concomitant]
     Dosage: UNK
  9. MYFORTIC [Concomitant]
     Dosage: UNK
  10. TERAZOSIN [Concomitant]
     Dosage: UNK
  11. FINASTERIDE [Concomitant]
     Dosage: UNK
  12. PREDNISONE [Concomitant]
     Dosage: UNK
  13. PROGRAF [Concomitant]
     Dosage: UNK
  14. GABAPENTIN [Concomitant]
     Dosage: UNK
  15. TEMAZEPAM [Concomitant]
     Dosage: UNK
  16. PRAVASTATIN [Concomitant]
     Dosage: UNK
  17. ALLOPURINOL [Concomitant]
     Dosage: UNK
  18. IRON [Concomitant]
     Dosage: 65 MG, UNK
  19. OXYCODONE [Concomitant]
     Dosage: 15 MG, UNK
  20. HUMULIN R [Concomitant]
     Dosage: UNK
  21. HUMULIN-N [Concomitant]
     Dosage: UNK
  22. DORZOLAMIDE [Concomitant]
     Dosage: UNK
  23. TRAVATAN [Concomitant]
     Dosage: UNK

REACTIONS (4)
  - Pneumonia [Unknown]
  - Cystitis [Unknown]
  - Pyrexia [Unknown]
  - Adrenal disorder [Unknown]
